FAERS Safety Report 4393807-0 (Version None)
Quarter: 2004Q3

REPORT INFORMATION
  Report Type: 
  Country: None (occurrence: None)
  Receive Date: 20040709
  Receipt Date: 20040603
  Transmission Date: 20050211
  Serious: Yes (Hospitalization, Other)
  Sender: FDA-Public Use
  Company Number: FR-BRISTOL-MYERS SQUIBB COMPANY-12604476

PATIENT
  Age: 82 Year
  Sex: Female
  Weight: 66 kg

DRUGS (10)
  1. MUCOMYST [Suspect]
     Dosage: 1/DAY. TREATMENT DATES UNKNOWN; DID NOT RECEIVE PRODUCT AT HOME.
     Route: 048
  2. FLUDEX [Suspect]
     Indication: OEDEMA
     Dosage: 1/DAY
     Route: 048
     Dates: start: 20040414, end: 20040424
  3. ASPIRIN [Suspect]
     Dosage: 1/DAY
     Route: 048
  4. MINISINTROM [Suspect]
     Indication: ATRIAL FIBRILLATION
     Dosage: 1.5/DAY
     Route: 048
     Dates: start: 20040418, end: 20040423
  5. FRAXODI [Suspect]
     Indication: ATRIAL FIBRILLATION
     Route: 058
     Dates: start: 20040405, end: 20040423
  6. TRIATEC [Suspect]
     Indication: PULMONARY HYPERTENSION
     Dosage: 1/DAY
     Route: 048
  7. HEMIGOXINE NATIVELLE [Suspect]
     Dosage: 1/DAY
     Route: 048
  8. HYPNOVEL [Suspect]
     Route: 042
     Dates: start: 20040423, end: 20040423
  9. SUFENTA [Suspect]
     Route: 042
     Dates: start: 20040423, end: 20040423
  10. ANTICOAGULANT [Suspect]

REACTIONS (8)
  - CARDIAC FAILURE [None]
  - HAEMATOMA [None]
  - MALAISE [None]
  - PURPURA [None]
  - RASH ERYTHEMATOUS [None]
  - RESPIRATORY FAILURE [None]
  - TRACHEAL STENOSIS [None]
  - URINARY TRACT INFECTION [None]
